FAERS Safety Report 25808563 (Version 2)
Quarter: 2025Q4

REPORT INFORMATION
  Report Type: Spontaneous
  Country: AU (occurrence: AU)
  Receive Date: 20250916
  Receipt Date: 20251215
  Transmission Date: 20260117
  Serious: Yes (Other)
  Sender: SAMSUNG BIOEPIS
  Company Number: AU-SAMSUNG BIOEPIS-SB-2025-30668

PATIENT
  Age: 62 Year
  Sex: Male

DRUGS (4)
  1. ETANERCEPT [Suspect]
     Active Substance: ETANERCEPT
     Indication: Rheumatoid arthritis
     Route: 058
     Dates: start: 20241216, end: 20250622
  2. PREDNISOLONE [Concomitant]
     Active Substance: PREDNISOLONE
     Indication: Rheumatoid arthritis
     Dosage: 2.5 TO 10 MG DAILY;
     Route: 048
     Dates: start: 20250228
  3. ALLOPURINOL [Concomitant]
     Active Substance: ALLOPURINOL
     Indication: Gout
     Route: 048
     Dates: start: 2020
  4. DUTASTERIDE\TAMSULOSIN [Concomitant]
     Active Substance: DUTASTERIDE\TAMSULOSIN
     Indication: Prostatism
     Dosage: 500MCG/400MCG;
     Route: 048
     Dates: start: 2020

REACTIONS (4)
  - Neutropenia [Recovered/Resolved]
  - Immunodeficiency [Unknown]
  - Sinusitis [Recovered/Resolved]
  - Therapeutic product effect decreased [Unknown]
